FAERS Safety Report 4592416-8 (Version None)
Quarter: 2005Q1

REPORT INFORMATION
  Report Type: 
  Country: None (occurrence: None)
  Receive Date: 20050228
  Receipt Date: 20050119
  Transmission Date: 20050727
  Serious: No
  Sender: FDA-Public Use
  Company Number: US-BRISTOL-MYERS SQUIBB COMPANY-12831475

PATIENT
  Age: 54 Year
  Sex: Female
  Weight: 101 kg

DRUGS (5)
  1. ABILIFY [Suspect]
     Indication: SCHIZOAFFECTIVE DISORDER
     Dates: start: 20041101
  2. ZOLOFT [Concomitant]
  3. VERAPAMIL [Concomitant]
  4. PRAVASTATIN [Concomitant]
  5. ZANTAC [Concomitant]

REACTIONS (2)
  - FREQUENT BOWEL MOVEMENTS [None]
  - HALLUCINATION, VISUAL [None]
